FAERS Safety Report 19369065 (Version 2)
Quarter: 2021Q2

REPORT INFORMATION
  Report Type: Spontaneous
  Country: US (occurrence: US)
  Receive Date: 20210603
  Receipt Date: 20210603
  Transmission Date: 20210717
  Serious: No
  Sender: FDA-Public Use
  Company Number: US-SPECGX-T202001213

PATIENT
  Age: 59 Year
  Sex: Female
  Weight: 45 kg

DRUGS (1)
  1. HYDROCODONE/ACETAMINOPHEN [Suspect]
     Active Substance: ACETAMINOPHEN\HYDROCODONE
     Indication: PAIN
     Dosage: UNK
     Route: 048
     Dates: start: 20200617

REACTIONS (4)
  - Disorientation [Unknown]
  - Drug ineffective [Unknown]
  - Vision blurred [Unknown]
  - Malaise [Unknown]

NARRATIVE: CASE EVENT DATE: 20200617
